FAERS Safety Report 16104819 (Version 1)
Quarter: 2019Q1

REPORT INFORMATION
  Report Type: Spontaneous
  Country: JP (occurrence: JP)
  Receive Date: 20190322
  Receipt Date: 20190322
  Transmission Date: 20190418
  Serious: Yes (Hospitalization)
  Sender: FDA-Public Use
  Company Number: JP-009507513-1903JPN009047

PATIENT
  Age: 72 Year
  Sex: Male

DRUGS (4)
  1. DALACIN [Suspect]
     Active Substance: CLINDAMYCIN
     Indication: PNEUMONIA
     Dosage: 600MG THREE TIMES PER DAY
     Route: 042
     Dates: start: 20080520, end: 20080522
  2. PENTCILLIN [Suspect]
     Active Substance: PIPERACILLIN SODIUM
     Indication: PNEUMONIA
     Dosage: 1G FOUR TIMES PER DAY
     Route: 042
     Dates: start: 20080522, end: 20080530
  3. MODACIN [Suspect]
     Active Substance: CEFTAZIDIME
     Indication: PNEUMONIA
     Dosage: 1G TWICE PER DAY
     Route: 042
     Dates: start: 20080520, end: 20080522
  4. TIENAM FOR INTRAVENOUS DRIP INFUSION 0.5G [Suspect]
     Active Substance: CILASTATIN SODIUM\IMIPENEM
     Indication: PNEUMONIA
     Dosage: 0.5G TWICE PER DAY
     Route: 042
     Dates: start: 20080522, end: 20080530

REACTIONS (7)
  - Drug eruption [Unknown]
  - Skin erosion [Unknown]
  - Blister [Unknown]
  - Rash erythematous [Unknown]
  - Pyrexia [Unknown]
  - Generalised erythema [Unknown]
  - Toxic epidermal necrolysis [Unknown]

NARRATIVE: CASE EVENT DATE: 20080528
